FAERS Safety Report 8410069 (Version 2)
Quarter: 2013Q2

REPORT INFORMATION
  Report Type: Report from Study
  Country: AU (occurrence: AU)
  Receive Date: 20120216
  Receipt Date: 20130602
  Transmission Date: 20140414
  Serious: No
  Sender: FDA-Public Use
  Company Number: PHHY2011AU115590

PATIENT
  Age: 61 Year
  Sex: Female

DRUGS (3)
  1. ACLASTA [Suspect]
     Dosage: UNK
     Route: 042
     Dates: start: 20081127
  2. ACLASTA [Suspect]
     Dosage: UNK
     Route: 042
     Dates: start: 20091116
  3. ACLASTA [Suspect]
     Dosage: UNK
     Route: 042
     Dates: start: 20110301

REACTIONS (3)
  - Blood pressure decreased [Unknown]
  - Nausea [Unknown]
  - Pain [Unknown]
